FAERS Safety Report 8338888-4 (Version None)
Quarter: 2012Q2

REPORT INFORMATION
  Report Type: 
  Country: None (occurrence: None)
  Receive Date: 20120506
  Receipt Date: 20120208
  Transmission Date: 20120825
  Serious: Yes (Life-Threatening)
  Sender: FDA-Public Use
  Company Number: PHHY2012CA037493

PATIENT
  Sex: Female

DRUGS (1)
  1. GLEEVEC [Suspect]
     Indication: CHRONIC MYELOID LEUKAEMIA

REACTIONS (6)
  - SWELLING [None]
  - FLUID RETENTION [None]
  - PAIN [None]
  - FEELING ABNORMAL [None]
  - VOMITING [None]
  - DRUG INEFFECTIVE [None]
